FAERS Safety Report 11641129 (Version 1)
Quarter: 2015Q4

REPORT INFORMATION
  Report Type: Spontaneous
  Country: US (occurrence: US)
  Receive Date: 20151019
  Receipt Date: 20151019
  Transmission Date: 20160304
  Serious: No
  Sender: FDA-Public Use
  Company Number: US-ENDO PHARMACEUTICALS INC.-2015-000821

PATIENT
  Sex: Male
  Weight: 138.02 kg

DRUGS (1)
  1. AMITRIPTYLINE HCL 100MG (AMITRIPTYLINE HYDROCHLORIDE) (100 MILLIGRAM, TABLETS) (AMITRIPTYLINE HYDROCHLORIDE) [Suspect]
     Active Substance: AMITRIPTYLINE
     Indication: PRODUCT USED FOR UNKNOWN INDICATION
     Route: 065

REACTIONS (1)
  - Somnolence [Unknown]
